FAERS Safety Report 6610394-4 (Version None)
Quarter: 2010Q1

REPORT INFORMATION
  Report Type: 
  Country: None (occurrence: None)
  Receive Date: 20100302
  Receipt Date: 20091228
  Transmission Date: 20100710
  Serious: No
  Sender: FDA-Public Use
  Company Number: US-BAYER-201010301NA

PATIENT
  Age: 73 Year
  Sex: Male
  Weight: 75 kg

DRUGS (5)
  1. ULTRAVIST 150 [Suspect]
     Indication: COMPUTERISED TOMOGRAM ABDOMEN
     Dosage: TOTAL DAILY DOSE: 112 ML  UNIT DOSE: 200 ML
     Route: 042
     Dates: start: 20091228, end: 20091228
  2. ATENOLOL [Concomitant]
  3. ENALAPRIL MALEATE [Concomitant]
  4. LIPITOR [Concomitant]
  5. AMLODIPINE [Concomitant]

REACTIONS (3)
  - RASH ERYTHEMATOUS [None]
  - SNEEZING [None]
  - URTICARIA [None]
